FAERS Safety Report 15616869 (Version 3)
Quarter: 2019Q2

REPORT INFORMATION
  Report Type: Spontaneous
  Country: US (occurrence: US)
  Receive Date: 20181114
  Receipt Date: 20190430
  Transmission Date: 20190711
  Serious: Yes (Other)
  Sender: FDA-Public Use
  Company Number: US-ASTRAZENECA-2018SF46217

PATIENT
  Age: 25941 Day
  Sex: Female

DRUGS (65)
  1. PREVACID [Suspect]
     Active Substance: LANSOPRAZOLE
     Indication: GASTROOESOPHAGEAL REFLUX DISEASE
     Route: 065
     Dates: start: 20080525
  2. SIMVASTATIN. [Concomitant]
     Active Substance: SIMVASTATIN
     Indication: BLOOD CHOLESTEROL INCREASED
     Dates: start: 2007
  3. MELOXICAM. [Concomitant]
     Active Substance: MELOXICAM
     Indication: ARTHRITIS
     Dates: start: 2014, end: 2018
  4. TOPROL XL [Concomitant]
     Active Substance: METOPROLOL SUCCINATE
  5. CELEBREX [Concomitant]
     Active Substance: CELECOXIB
  6. CITALOPRAM [Concomitant]
     Active Substance: CITALOPRAM HYDROBROMIDE
  7. LOPERAMIDE [Concomitant]
     Active Substance: LOPERAMIDE
  8. OMEPRAZOLE. [Suspect]
     Active Substance: OMEPRAZOLE
     Indication: GASTROOESOPHAGEAL REFLUX DISEASE
     Route: 048
     Dates: start: 2018
  9. PANTOPRAZOLE [Suspect]
     Active Substance: PANTOPRAZOLE
     Indication: GASTROOESOPHAGEAL REFLUX DISEASE
     Dosage: PANTOPRAZOLE (PROTONIX)-TAKE 1 TAB BY MOUTH DAILY.
     Route: 048
     Dates: start: 20160411
  10. ONDANSETRON [Concomitant]
     Active Substance: ONDANSETRON
     Indication: NAUSEA
     Dates: start: 2012
  11. VESICARE [Concomitant]
     Active Substance: SOLIFENACIN SUCCINATE
  12. VIIBRYD [Concomitant]
     Active Substance: VILAZODONE HYDROCHLORIDE
  13. MUPIROCIN. [Concomitant]
     Active Substance: MUPIROCIN
  14. CARVEDILOL. [Concomitant]
     Active Substance: CARVEDILOL
  15. PANTOPRAZOLE [Suspect]
     Active Substance: PANTOPRAZOLE
     Indication: GASTROOESOPHAGEAL REFLUX DISEASE
     Route: 065
     Dates: start: 2016, end: 2018
  16. FERROUS SULFATE. [Concomitant]
     Active Substance: FERROUS SULFATE
     Indication: IRON DEFICIENCY
     Dates: start: 2018
  17. REQUIP [Concomitant]
     Active Substance: ROPINIROLE HYDROCHLORIDE
  18. ACTOS [Concomitant]
     Active Substance: PIOGLITAZONE HYDROCHLORIDE
  19. PATADAY [Concomitant]
     Active Substance: OLOPATADINE HYDROCHLORIDE
  20. PHENAZOPYRIDINE. [Concomitant]
     Active Substance: PHENAZOPYRIDINE
  21. NITROFURANTOIN. [Concomitant]
     Active Substance: NITROFURANTOIN
  22. BETAMETHASONE. [Concomitant]
     Active Substance: BETAMETHASONE
  23. PANTOPRAZOLE [Suspect]
     Active Substance: PANTOPRAZOLE
     Indication: GASTROOESOPHAGEAL REFLUX DISEASE
     Dosage: PANTOPRAZOLE SOD
     Route: 065
     Dates: start: 20160311
  24. GABAPENTIN. [Concomitant]
     Active Substance: GABAPENTIN
     Indication: SEIZURE
     Dates: start: 2007
  25. AZITHROMYCIN ANHYDROUS. [Concomitant]
     Active Substance: AZITHROMYCIN ANHYDROUS
  26. DIPHENHYDRAMINE. [Concomitant]
     Active Substance: DIPHENHYDRAMINE
  27. FLUOXETINE [Concomitant]
     Active Substance: FLUOXETINE HYDROCHLORIDE
  28. LOSARTAN POTASSIUM. [Concomitant]
     Active Substance: LOSARTAN POTASSIUM
     Indication: HYPERTENSION
     Dates: start: 2015, end: 2018
  29. PRISTIQ EXTENDED-RELEASE [Concomitant]
     Active Substance: DESVENLAFAXINE SUCCINATE
     Indication: DEPRESSION
     Dates: start: 2014, end: 2017
  30. TESSALON [Concomitant]
     Active Substance: BENZONATATE
  31. MYRBETRIQ [Concomitant]
     Active Substance: MIRABEGRON
  32. HYOSCYAMINE. [Concomitant]
     Active Substance: HYOSCYAMINE
  33. METHOCARBAMOL. [Concomitant]
     Active Substance: METHOCARBAMOL
  34. ULTRAM [Concomitant]
     Active Substance: TRAMADOL HYDROCHLORIDE
  35. CARVEDILOL. [Concomitant]
     Active Substance: CARVEDILOL
  36. NEXIUM [Suspect]
     Active Substance: ESOMEPRAZOLE MAGNESIUM
     Indication: GASTROOESOPHAGEAL REFLUX DISEASE
     Dosage: ESOMEPRAZOLE (NEXIUM)-TAKE 1 CAP BY MOUTH DAILY
     Route: 048
     Dates: start: 20160411
  37. TRADJENTA [Concomitant]
     Active Substance: LINAGLIPTIN
     Indication: DIABETES MELLITUS
     Dates: start: 2016
  38. CARVEDILOL. [Concomitant]
     Active Substance: CARVEDILOL
     Indication: HYPERTENSION
     Dates: start: 2016
  39. ZANTAC [Concomitant]
     Active Substance: RANITIDINE HYDROCHLORIDE
     Dosage: 150 (PRESCRIPTION), NOT SURE, BEFORE 2008
  40. GLUCOTROL [Concomitant]
     Active Substance: GLIPIZIDE
  41. TRIMPEX [Concomitant]
     Active Substance: TRIMETHOPRIM
  42. ZOCOR [Concomitant]
     Active Substance: SIMVASTATIN
  43. BROMFED DM [Concomitant]
     Active Substance: BROMPHENIRAMINE MALEATE\DEXTROMETHORPHAN HYDROBROMIDE\PSEUDOEPHEDRINE HYDROCHLORIDE
  44. AVANDIA [Concomitant]
     Active Substance: ROSIGLITAZONE MALEATE
  45. LUNESTA [Concomitant]
     Active Substance: ESZOPICLONE
  46. ROZEREM [Concomitant]
     Active Substance: RAMELTEON
  47. ULTRAM [Concomitant]
     Active Substance: TRAMADOL HYDROCHLORIDE
  48. NEXIUM [Suspect]
     Active Substance: ESOMEPRAZOLE MAGNESIUM
     Indication: GASTROOESOPHAGEAL REFLUX DISEASE
     Route: 048
     Dates: start: 2008, end: 2018
  49. NEXIUM [Suspect]
     Active Substance: ESOMEPRAZOLE MAGNESIUM
     Indication: GASTROOESOPHAGEAL REFLUX DISEASE
     Route: 048
     Dates: start: 20080923
  50. OMEPRAZOLE. [Suspect]
     Active Substance: OMEPRAZOLE
     Indication: GASTROOESOPHAGEAL REFLUX DISEASE
     Route: 048
     Dates: start: 20180326
  51. PREVACID [Suspect]
     Active Substance: LANSOPRAZOLE
     Indication: GASTROOESOPHAGEAL REFLUX DISEASE
     Route: 065
     Dates: start: 2008
  52. TRIMETHOPRIM. [Concomitant]
     Active Substance: TRIMETHOPRIM
     Indication: INFECTION
     Dates: start: 2015
  53. LOPERAMIDE [Concomitant]
     Active Substance: LOPERAMIDE
     Indication: DIARRHOEA
     Dates: start: 2007
  54. METFORMIN [Concomitant]
     Active Substance: METFORMIN HYDROCHLORIDE
     Indication: DIABETES MELLITUS
     Dates: start: 2012, end: 2018
  55. GLIPIZIDE. [Concomitant]
     Active Substance: GLIPIZIDE
     Indication: DIABETES MELLITUS
     Dates: start: 2012, end: 2018
  56. MOBIC [Concomitant]
     Active Substance: MELOXICAM
  57. TEMAZEPAM. [Concomitant]
     Active Substance: TEMAZEPAM
  58. LEXAPRO [Concomitant]
     Active Substance: ESCITALOPRAM OXALATE
  59. OXYTROL [Concomitant]
     Active Substance: OXYBUTYNIN
  60. NEXIUM [Suspect]
     Active Substance: ESOMEPRAZOLE MAGNESIUM
     Indication: GASTROOESOPHAGEAL REFLUX DISEASE
     Route: 048
     Dates: start: 2008, end: 2016
  61. PREVACID [Suspect]
     Active Substance: LANSOPRAZOLE
     Indication: GASTROOESOPHAGEAL REFLUX DISEASE
     Route: 065
     Dates: start: 2008, end: 2018
  62. XANAX [Concomitant]
     Active Substance: ALPRAZOLAM
  63. SERTRALINE [Concomitant]
     Active Substance: SERTRALINE HYDROCHLORIDE
  64. FAMCICLOVIR. [Concomitant]
     Active Substance: FAMCICLOVIR
  65. COZAAR [Concomitant]
     Active Substance: LOSARTAN POTASSIUM

REACTIONS (3)
  - Chronic kidney disease [Not Recovered/Not Resolved]
  - Renal failure [Unknown]
  - Renal impairment [Unknown]

NARRATIVE: CASE EVENT DATE: 20160411
